FAERS Safety Report 10455696 (Version 1)
Quarter: 2014Q3

REPORT INFORMATION
  Report Type: Spontaneous
  Country: US (occurrence: None)
  Receive Date: 20140915
  Receipt Date: 20140915
  Transmission Date: 20150326
  Serious: Yes (Disabling)
  Sender: FDA-Public Use
  Company Number: None

PATIENT
  Age: 60 Year
  Sex: Female
  Weight: 65.77 kg

DRUGS (1)
  1. REMICADE [Suspect]
     Active Substance: INFLIXIMAB
     Indication: RHEUMATOID ARTHRITIS
     Dosage: INFUSION  EVERY TWO MONTHS
     Dates: start: 20140603, end: 20140730

REACTIONS (9)
  - Dehydration [None]
  - Weight decreased [None]
  - Headache [None]
  - Myalgia [None]
  - Feeling abnormal [None]
  - Asthenia [None]
  - Decreased appetite [None]
  - Arthralgia [None]
  - Nausea [None]

NARRATIVE: CASE EVENT DATE: 20140823
